FAERS Safety Report 7209493-8 (Version None)
Quarter: 2010Q4

REPORT INFORMATION
  Report Type: 
  Country: None (occurrence: None)
  Receive Date: 20101223
  Receipt Date: 20101208
  Transmission Date: 20110411
  Serious: Yes (Other)
  Sender: FDA-Public Use
  Company Number: APP201001075

PATIENT
  Age: 78 Year
  Sex: Female

DRUGS (3)
  1. PAMIDRONATE DISODIUM [Suspect]
     Indication: RESORPTION BONE INCREASED
     Dosage: 60 MG, 3 WK, INTRAVENOUS
     Route: 042
  2. STEROIDS [Concomitant]
  3. CYTOSTATICS [Concomitant]

REACTIONS (3)
  - ACTINOMYCOSIS [None]
  - OSTEOMYELITIS FUNGAL [None]
  - OSTEONECROSIS OF JAW [None]
